FAERS Safety Report 25924289 (Version 1)
Quarter: 2025Q4

REPORT INFORMATION
  Report Type: Spontaneous
  Country: US (occurrence: US)
  Receive Date: 20251015
  Receipt Date: 20251015
  Transmission Date: 20260119
  Serious: No
  Sender: SHIELD THERAPEUTICS
  Company Number: US-SHIELD THERAPEUTICS-US-STX-24-00283

PATIENT
  Age: 66 Year
  Sex: Female

DRUGS (4)
  1. ACCRUFER [Suspect]
     Active Substance: FERRIC MALTOL
     Indication: Hypertensive heart disease
     Dosage: 30 MILLIGRAM, BID
     Route: 048
     Dates: start: 20240914
  2. ACCRUFER [Suspect]
     Active Substance: FERRIC MALTOL
     Indication: Chronic kidney disease
  3. CORTICOSTEROID NOS [Concomitant]
     Active Substance: CORTICOSTEROID NOS
     Indication: Product used for unknown indication
     Dosage: UNKNOWN
     Route: 065
  4. CIPRO [Concomitant]
     Active Substance: CIPROFLOXACIN HYDROCHLORIDE
     Indication: Product used for unknown indication
     Dosage: UNKNOWN
     Route: 065

REACTIONS (2)
  - Constipation [Unknown]
  - Off label use [Unknown]
